FAERS Safety Report 25034808 (Version 1)
Quarter: 2025Q1

REPORT INFORMATION
  Report Type: Spontaneous
  Country: US (occurrence: None)
  Receive Date: 20250304
  Receipt Date: 20250304
  Transmission Date: 20250409
  Serious: No
  Sender: ENCUBE ETHICALS
  Company Number: US-Encube-001667

PATIENT
  Sex: Male

DRUGS (1)
  1. CLINDAMYCIN PHOSPHATE [Suspect]
     Active Substance: CLINDAMYCIN PHOSPHATE
     Indication: Rosacea

REACTIONS (2)
  - Application site irritation [Recovered/Resolved]
  - Off label use [Unknown]
